FAERS Safety Report 8437438-1 (Version None)
Quarter: 2012Q2

REPORT INFORMATION
  Report Type: 
  Country: None (occurrence: None)
  Receive Date: 20120614
  Receipt Date: 20120326
  Transmission Date: 20120825
  Serious: No
  Sender: FDA-Public Use
  Company Number: US-AMGEN-USASP2012014580

PATIENT
  Age: 55 Year
  Sex: Female

DRUGS (5)
  1. VITAMIN D [Concomitant]
     Dosage: UNK UNK, QD
     Route: 048
  2. PROLIA [Suspect]
     Indication: OSTEOPOROSIS POSTMENOPAUSAL
     Dosage: 60 MG, Q6MO
  3. SYNTHROID [Concomitant]
     Dosage: UNK UNK, QD
     Route: 048
  4. PROLIA [Suspect]
  5. ESTRACE [Concomitant]
     Dosage: UNK UNK, Q2WK
     Route: 061

REACTIONS (2)
  - PAIN [None]
  - BONE PAIN [None]
